FAERS Safety Report 7128658-7 (Version None)
Quarter: 2010Q4

REPORT INFORMATION
  Report Type: 
  Country: None (occurrence: None)
  Receive Date: 20101130
  Receipt Date: 20101124
  Transmission Date: 20110411
  Serious: Yes (Hospitalization, Other)
  Sender: FDA-Public Use
  Company Number: BR-ROCHE-715259

PATIENT
  Sex: Male
  Weight: 80 kg

DRUGS (7)
  1. TOCILIZUMAB [Suspect]
     Indication: RHEUMATOID ARTHRITIS
     Dosage: FORM: INFUSION
     Route: 042
     Dates: start: 20100518
  2. TOCILIZUMAB [Suspect]
     Dosage: INFUSION
     Route: 042
     Dates: start: 20100713, end: 20100713
  3. TYLENOL (CAPLET) [Concomitant]
  4. TYLENOL (CAPLET) [Concomitant]
  5. OMEPRAZOLE [Concomitant]
  6. PREDNISONE [Concomitant]
  7. METHOTREXATE [Concomitant]

REACTIONS (6)
  - DRUG INEFFECTIVE [None]
  - INFECTION [None]
  - OROPHARYNGEAL PAIN [None]
  - PAIN [None]
  - PYREXIA [None]
  - SWELLING [None]
